FAERS Safety Report 6809293-4 (Version None)
Quarter: 2010Q2

REPORT INFORMATION
  Report Type: 
  Country: None (occurrence: None)
  Receive Date: 20100625
  Receipt Date: 20100614
  Transmission Date: 20101027
  Serious: Yes (Other)
  Sender: FDA-Public Use
  Company Number: AUR-APL-2010-00905

PATIENT
  Age: 75 Year
  Sex: Male

DRUGS (9)
  1. AMOXICILLIN [Suspect]
  2. EPILIM (SODIUM VALPROATE) [Suspect]
     Indication: CONVULSION
     Dosage: 400 MG DAILY INTRAVENOUS
     Route: 042
     Dates: start: 20100213
  3. ASPIRIN [Concomitant]
  4. DIPYRIDAMOLE [Concomitant]
  5. NULYTELY [Concomitant]
  6. SIMVASTATIN [Concomitant]
  7. NA BICARBONATE [Concomitant]
  8. POTASSIUM CHLORIDE [Concomitant]
  9. NAC1 [Concomitant]

REACTIONS (2)
  - CONVULSION [None]
  - INTERNATIONAL NORMALISED RATIO INCREASED [None]
